FAERS Safety Report 5564244-8 (Version None)
Quarter: 2007Q4

REPORT INFORMATION
  Report Type: 
  Country: None (occurrence: None)
  Receive Date: 20071217
  Receipt Date: 20071211
  Transmission Date: 20080405
  Serious: Yes (Other)
  Sender: FDA-Public Use
  Company Number: US-GILEAD-2007-0014579

PATIENT
  Sex: Female
  Weight: 77.18 kg

DRUGS (9)
  1. LETAIRIS [Suspect]
     Indication: PULMONARY HYPERTENSION
     Route: 048
     Dates: start: 20071109
  2. VENTAVIS [Concomitant]
     Indication: PULMONARY HYPERTENSION
     Route: 055
  3. REVATIO [Concomitant]
     Indication: PULMONARY HYPERTENSION
     Route: 048
  4. LASIX [Concomitant]
     Indication: PULMONARY HYPERTENSION
     Route: 048
  5. COUMADIN [Concomitant]
     Indication: ANTICOAGULANT THERAPY
     Route: 048
  6. POTASSIUM CHLORIDE [Concomitant]
     Indication: MINERAL SUPPLEMENTATION
     Route: 048
  7. LOTREL [Concomitant]
     Indication: ESSENTIAL HYPERTENSION
     Dosage: 10-40 MG
     Route: 048
  8. FERROUS SULFATE TAB [Concomitant]
     Indication: ANAEMIA
     Route: 048
  9. NASONEX [Concomitant]
     Indication: SINUSITIS
     Route: 055

REACTIONS (6)
  - HEADACHE [None]
  - HOT FLUSH [None]
  - HYPOAESTHESIA [None]
  - MUSCULOSKELETAL STIFFNESS [None]
  - PALPITATIONS [None]
  - PARAESTHESIA [None]
